FAERS Safety Report 9302947 (Version 1)
Quarter: 2013Q2

REPORT INFORMATION
  Report Type: Spontaneous
  Country: FR (occurrence: FR)
  Receive Date: 20130522
  Receipt Date: 20130522
  Transmission Date: 20140414
  Serious: Yes (Other)
  Sender: FDA-Public Use
  Company Number: FR-SANOFI-AVENTIS-2013SA050808

PATIENT
  Age: 31 Year
  Sex: Female
  Weight: 56 kg

DRUGS (3)
  1. CLOMIFENE CITRATE [Suspect]
     Indication: OVULATION INDUCTION
     Route: 065
  2. PUREGON [Suspect]
     Indication: OVULATION INDUCTION
     Route: 065
  3. TRIPTORELIN [Suspect]
     Indication: OVULATION INDUCTION
     Route: 065

REACTIONS (11)
  - Endometriosis [Unknown]
  - Large intestinal stenosis [Recovered/Resolved]
  - White blood cell count increased [Unknown]
  - C-reactive protein increased [Unknown]
  - Intestinal obstruction [Unknown]
  - Abdominal distension [Unknown]
  - Abdominal pain [Unknown]
  - Nausea [Unknown]
  - Vomiting [Unknown]
  - Constipation [Unknown]
  - Drug ineffective [Unknown]
